FAERS Safety Report 6417778-8 (Version None)
Quarter: 2009Q4

REPORT INFORMATION
  Report Type: 
  Country: None (occurrence: None)
  Receive Date: 20091027
  Receipt Date: 20091027
  Transmission Date: 20100525
  Serious: Yes (Hospitalization)
  Sender: FDA-Public Use
  Company Number: None

PATIENT
  Age: 63 Year
  Sex: Male
  Weight: 72 kg

DRUGS (18)
  1. INSULIN GLARGINE [Suspect]
     Indication: DIABETES MELLITUS
     Dosage: 18U SQ QHS
     Route: 058
     Dates: start: 20090913, end: 20090917
  2. INSULIN ASPART [Suspect]
     Indication: DIABETES MELLITUS
     Dosage: 6/6/10U SQ BFAST/LUNCH/DINER
     Route: 058
     Dates: start: 20090910, end: 20090917
  3. HEPARIN [Concomitant]
  4. ASPIRIN [Concomitant]
  5. BISACODYL [Concomitant]
  6. CARVEDILOL [Concomitant]
  7. CLOPIDOGREL [Concomitant]
  8. DOCUSATE [Concomitant]
  9. ENALAPRIL [Concomitant]
  10. ISOSORBIDE [Concomitant]
  11. LACTULOSE [Concomitant]
  12. MAGNESIUM HYDROXIDE TAB [Concomitant]
  13. NITROGLYCERIN [Concomitant]
  14. OXYCODONE [Concomitant]
  15. RANITIDINE [Concomitant]
  16. VANCOMYCIN [Concomitant]
  17. ALBUTEROL [Concomitant]
  18. IPRATROPIUM [Concomitant]

REACTIONS (3)
  - BLOOD GLUCOSE DECREASED [None]
  - BLOOD GLUCOSE INCREASED [None]
  - HYPERHIDROSIS [None]
